FAERS Safety Report 17761398 (Version 1)
Quarter: 2020Q2

REPORT INFORMATION
  Report Type: Spontaneous
  Country: FR (occurrence: FR)
  Receive Date: 20200508
  Receipt Date: 20200508
  Transmission Date: 20200714
  Serious: Yes (Hospitalization, Other)
  Sender: FDA-Public Use
  Company Number: FR-MYLANLABS-2020M1045027

PATIENT
  Sex: Male

DRUGS (2)
  1. PREDNISONE. [Suspect]
     Active Substance: PREDNISONE
     Indication: DERMATITIS BULLOUS
     Dosage: 1 MG/KG, QD
     Route: 065
  2. MABTHERA [Concomitant]
     Active Substance: RITUXIMAB
     Indication: DERMATITIS BULLOUS
     Dosage: 1 G, ON D1 AND D5
     Route: 065

REACTIONS (1)
  - Dermatitis bullous [Recovered/Resolved]
